FAERS Safety Report 4475236-4 (Version None)
Quarter: 2004Q4

REPORT INFORMATION
  Report Type: 
  Country: None (occurrence: None)
  Receive Date: 20041013
  Receipt Date: 20041013
  Transmission Date: 20050328
  Serious: Yes (Other)
  Sender: FDA-Public Use
  Company Number: None

PATIENT
  Age: 15 Year
  Sex: Female
  Weight: 49.8957 kg

DRUGS (4)
  1. XOLAIR [Suspect]
     Dosage: 375 MG ONCE A MONTH SQ
     Route: 058
     Dates: start: 20040927, end: 20041012
  2. ADVAIR DISKUS 100/50 [Concomitant]
  3. SINGULAIR [Concomitant]
  4. PREDNISONE [Concomitant]

REACTIONS (4)
  - BACK PAIN [None]
  - HYPOAESTHESIA [None]
  - OEDEMA PERIPHERAL [None]
  - SWELLING [None]
